FAERS Safety Report 8361661-8 (Version None)
Quarter: 2012Q2

REPORT INFORMATION
  Report Type: 
  Country: None (occurrence: None)
  Receive Date: 20120515
  Receipt Date: 20111205
  Transmission Date: 20120825
  Serious: No
  Sender: FDA-Public Use
  Company Number: US-ABBOTT-11P-163-0881373-00

PATIENT
  Sex: Female
  Weight: 49.94 kg

DRUGS (1)
  1. PROMETRIUM [Suspect]
     Indication: POLYCYSTIC OVARIES
     Dates: start: 20100101, end: 20100101

REACTIONS (6)
  - HEADACHE [None]
  - ASTHMA [None]
  - HYPERSENSITIVITY [None]
  - UPPER RESPIRATORY TRACT CONGESTION [None]
  - URTICARIA [None]
  - OFF LABEL USE [None]
